FAERS Safety Report 8739613 (Version 2)
Quarter: 2012Q4

REPORT INFORMATION
  Report Type: Report from Study
  Country: US (occurrence: US)
  Receive Date: 20120823
  Receipt Date: 20120904
  Transmission Date: 20130627
  Serious: Yes (Hospitalization)
  Sender: FDA-Public Use
  Company Number: US-VIIV HEALTHCARE LIMITED-B0824407A

PATIENT
  Age: 48 Year
  Sex: Male
  Weight: 58.6 kg

DRUGS (8)
  1. MARAVIROC [Suspect]
     Indication: HIV INFECTION
     Dosage: 300MG Twice per day
     Route: 048
     Dates: start: 20100410
  2. INTELENCE [Concomitant]
     Indication: HIV INFECTION
     Dosage: 200MG Twice per day
     Dates: start: 20080616
  3. ISENTRESS [Concomitant]
     Indication: HIV INFECTION
     Dosage: 400MG Twice per day
     Dates: start: 20081012
  4. PREZISTA [Concomitant]
     Indication: HIV INFECTION
     Dosage: 600MG Twice per day
     Dates: start: 20100426
  5. NORVIR [Concomitant]
     Indication: HIV INFECTION
     Dosage: 100MG Twice per day
     Dates: start: 20100426
  6. LABETALOL [Concomitant]
     Indication: HYPERTENSION
     Route: 048
  7. LISINOPRIL [Concomitant]
     Indication: HYPERTENSION
     Route: 048
  8. CLONIDINE [Concomitant]
     Indication: HYPERTENSION
     Route: 048

REACTIONS (2)
  - Pulmonary oedema [Recovered/Resolved]
  - Hyperkalaemia [Recovered/Resolved]
